FAERS Safety Report 24029388 (Version 1)
Quarter: 2024Q2

REPORT INFORMATION
  Report Type: Spontaneous
  Country: ES (occurrence: ES)
  Receive Date: 20240628
  Receipt Date: 20240628
  Transmission Date: 20240715
  Serious: Yes (Hospitalization)
  Sender: FDA-Public Use
  Company Number: None

PATIENT
  Age: 79 Year
  Sex: Female

DRUGS (2)
  1. DOXORUBICIN HYDROCHLORIDE [Suspect]
     Active Substance: DOXORUBICIN HYDROCHLORIDE
     Indication: Breast cancer female
     Dosage: 96 MG (96 MILLIGRAMS EVERY 2 WEEKS)
     Route: 042
     Dates: start: 20230112, end: 20230112
  2. CYCLOPHOSPHAMIDE [Suspect]
     Active Substance: CYCLOPHOSPHAMIDE
     Indication: Breast cancer female
     Dosage: 960 MG (FREQ:2 WK;)
     Route: 042
     Dates: start: 20230112, end: 20230112

REACTIONS (4)
  - Neutropenia [Recovered/Resolved]
  - Hypokalaemia [Recovered/Resolved]
  - Agranulocytosis [Recovered/Resolved]
  - Platelet count decreased [Recovered/Resolved]

NARRATIVE: CASE EVENT DATE: 20230120
